FAERS Safety Report 10006854 (Version 2)
Quarter: 2014Q1

REPORT INFORMATION
  Report Type: Spontaneous
  Country: US (occurrence: None)
  Receive Date: 20140311
  Receipt Date: 20140318
  Transmission Date: 20141002
  Serious: Yes (Hospitalization, Other)
  Sender: FDA-Public Use
  Company Number: 2014P1001645

PATIENT
  Age: 71 Year
  Sex: Male
  Weight: 67.13 kg

DRUGS (10)
  1. SANTYL OINTMENT (NO PREF. NAME) [Suspect]
     Indication: WOUND
     Route: 061
     Dates: start: 201302
  2. SIMVASTATIN [Concomitant]
  3. WARFARIN [Concomitant]
  4. AMLODIPINE BESYLATE [Concomitant]
  5. JANUMET [Concomitant]
  6. MAGNESIUM [Concomitant]
  7. UNSPECIFIED MULTIVITAMIN [Concomitant]
  8. CALCIUM 600 MG PLUS VITAMIN D [Concomitant]
  9. DIOVAN [Concomitant]
  10. SILVER NITRATE [Suspect]
     Route: 061
     Dates: start: 201402, end: 201402

REACTIONS (5)
  - Drug ineffective [None]
  - Burning sensation [None]
  - Toe amputation [None]
  - Wound infection staphylococcal [None]
  - Osteomyelitis [None]
